FAERS Safety Report 17597720 (Version 1)
Quarter: 2020Q1

REPORT INFORMATION
  Report Type: Spontaneous
  Country: SG (occurrence: GB)
  Receive Date: 20200330
  Receipt Date: 20200330
  Transmission Date: 20200409
  Serious: Yes (Other)
  Sender: FDA-Public Use
  Company Number: GB-TEVA-2020-GB-1213867

PATIENT
  Age: 79 Year
  Sex: Male

DRUGS (6)
  1. IMIQUIMOD. [Concomitant]
     Active Substance: IMIQUIMOD
     Indication: GENITAL HERPES SIMPLEX
     Dosage: 2 GRAM DAILY; SCHEDULED FOR 21 DAYS
     Route: 061
  2. FOSCARNET [Suspect]
     Active Substance: FOSCARNET
     Indication: GENITAL HERPES SIMPLEX
     Dosage: 1.5-1.8G DAILY FOR TWO WEEKS
     Route: 042
  3. LAMIVUDINE. [Suspect]
     Active Substance: LAMIVUDINE
     Indication: HIV INFECTION
     Route: 065
  4. DARUNAVIR [Suspect]
     Active Substance: DARUNAVIR
     Indication: HIV INFECTION
     Route: 065
  5. VALGANCICLOVIR. [Suspect]
     Active Substance: VALGANCICLOVIR
     Indication: GENITAL HERPES SIMPLEX
     Dosage: 0.5-1 G TWICE DAILY
     Route: 048
  6. TENOFOVIR [Suspect]
     Active Substance: TENOFOVIR
     Indication: HIV INFECTION
     Route: 065

REACTIONS (2)
  - Immune reconstitution inflammatory syndrome [Unknown]
  - Pathogen resistance [Unknown]
